FAERS Safety Report 5116934-9 (Version None)
Quarter: 2006Q3

REPORT INFORMATION
  Report Type: 
  Country: None (occurrence: None)
  Receive Date: 20060925
  Receipt Date: 20060918
  Transmission Date: 20061208
  Serious: Yes (Death)
  Sender: FDA-Public Use
  Company Number: 009-C5013-06090695

PATIENT
  Age: 50 Year
  Sex: Female
  Weight: 44 kg

DRUGS (2)
  1. REVLIMID [Suspect]
     Indication: MULTIPLE MYELOMA
     Dosage: SEE IMAGE, ORAL
     Route: 048
     Dates: start: 20060816, end: 20060830
  2. REVLIMID [Suspect]
     Indication: MULTIPLE MYELOMA
     Dosage: SEE IMAGE, ORAL
     Route: 048
     Dates: start: 20060830, end: 20060908

REACTIONS (6)
  - BLOOD COUNT ABNORMAL [None]
  - FEBRILE NEUTROPENIA [None]
  - HAEMORRHAGE [None]
  - PAIN [None]
  - SEPSIS [None]
  - THROMBOCYTOPENIA [None]
